FAERS Safety Report 22140894 (Version 1)
Quarter: 2023Q1

REPORT INFORMATION
  Report Type: Spontaneous
  Country: US (occurrence: None)
  Receive Date: 20230324
  Receipt Date: 20230324
  Transmission Date: 20230418
  Serious: Yes (Life-Threatening, Hospitalization, Disabling)
  Sender: FDA-Public Use
  Company Number: None

PATIENT
  Sex: Female
  Weight: 51.75 kg

DRUGS (7)
  1. XANAX [Suspect]
     Active Substance: ALPRAZOLAM
  2. PERCOCET [Concomitant]
     Active Substance: ACETAMINOPHEN\OXYCODONE HYDROCHLORIDE
  3. Venlafaxine 215 mg [Concomitant]
  4. melatonin 3mg [Concomitant]
  5. FOLIC ACID [Concomitant]
     Active Substance: FOLIC ACID
  6. VITAMIN B-12 [Concomitant]
  7. 100mcg multiple vitamin tablets [Concomitant]

REACTIONS (6)
  - Bipolar disorder [None]
  - Suicide attempt [None]
  - Drug dependence [None]
  - Schizophrenia [None]
  - Abortion [None]
  - Mental disorder [None]
